FAERS Safety Report 5027173-4 (Version None)
Quarter: 2006Q2

REPORT INFORMATION
  Report Type: 
  Country: None (occurrence: None)
  Receive Date: 20060501
  Receipt Date: 20060127
  Transmission Date: 20061013
  Serious: No
  Sender: FDA-Public Use
  Company Number: 2006PV007700

PATIENT
  Sex: 0

DRUGS (2)
  1. SYMLIN INJECTION (0.6 MG/ML) [Suspect]
     Indication: DRUG USE FOR UNKNOWN INDICATION
     Dosage: TID; SC
     Route: 058
  2. NOVOLOG MIX 70/30 [Concomitant]

REACTIONS (1)
  - INJECTION SITE PAIN [None]
